FAERS Safety Report 4413583-2 (Version None)
Quarter: 2004Q2

REPORT INFORMATION
  Report Type: 
  Country: None (occurrence: None)
  Receive Date: 20040630
  Receipt Date: 20040311
  Transmission Date: 20050107
  Serious: No
  Sender: FDA-Public Use
  Company Number: 04P-163-0253092-00

PATIENT
  Age: 38 Year
  Sex: Female
  Weight: 54.8852 kg

DRUGS (11)
  1. HUMIRA [Suspect]
     Dosage: 40 MG, 1 IN 2 WK, SUBCUTANEOUS
     Route: 058
     Dates: start: 20030101, end: 20040201
  2. VICODIN [Concomitant]
  3. ACETAMINOPHEN W/ CODEINE [Concomitant]
  4. LEVOTHYROXINE SODIUM [Concomitant]
  5. LORATADINE [Concomitant]
  6. PREDNISONE TAB [Concomitant]
  7. DIAZEPAM [Concomitant]
  8. ALPRAZOLAM [Concomitant]
  9. OMEPRAZOLE [Concomitant]
  10. ASCORBIC ACID [Concomitant]
  11. CALCIUM [Concomitant]

REACTIONS (6)
  - BONE PAIN [None]
  - HEADACHE [None]
  - OEDEMA PERIPHERAL [None]
  - RED BLOOD CELL SEDIMENTATION RATE INCREASED [None]
  - SINUSITIS [None]
  - UPPER RESPIRATORY TRACT INFECTION [None]
